FAERS Safety Report 17018121 (Version 4)
Quarter: 2020Q1

REPORT INFORMATION
  Report Type: Spontaneous
  Country: JP (occurrence: JP)
  Receive Date: 20191111
  Receipt Date: 20200206
  Transmission Date: 20200409
  Serious: Yes (Death, Life-Threatening, Other)
  Sender: FDA-Public Use
  Company Number: JP-ALLERGAN-1945034US

PATIENT
  Sex: Male

DRUGS (8)
  1. AMITIZA [Concomitant]
     Active Substance: LUBIPROSTONE
     Indication: CONSTIPATION
     Dosage: 24 ?G, BID
     Dates: start: 20180906
  2. DEPROMEL [Concomitant]
     Active Substance: FLUVOXAMINE
     Indication: DEPRESSED MOOD
     Dosage: 25 MG, QD
     Dates: start: 20180411
  3. BAYASPIRIN [Concomitant]
     Active Substance: ASPIRIN
     Indication: PROPHYLAXIS
     Dosage: 100 MG, QD
     Dates: start: 20180411
  4. BOTOX [Suspect]
     Active Substance: ONABOTULINUMTOXINA
     Dosage: 190 IU, SINGLE
     Route: 030
     Dates: start: 20190607, end: 20190607
  5. AMLODIPINE BESILATE [Concomitant]
     Active Substance: AMLODIPINE BESYLATE
     Indication: HYPERTENSION
     Dosage: 5 MG, QD
     Dates: start: 20180411
  6. PURSENNID [Concomitant]
     Indication: CONSTIPATION
     Dosage: 12 MG, BID
     Dates: start: 20191017
  7. BOTOX [Suspect]
     Active Substance: ONABOTULINUMTOXINA
     Indication: MUSCLE SPASTICITY
     Dosage: 240 UNITS, SINGLE
     Route: 030
     Dates: start: 20191024, end: 20191024
  8. MAGMITT [Concomitant]
     Active Substance: MAGNESIUM OXIDE
     Indication: CONSTIPATION
     Dosage: 330 MG, 6 TIMES PER DAY
     Dates: start: 20180411

REACTIONS (7)
  - Cholangitis [Fatal]
  - Respiratory failure [Fatal]
  - Pneumonia aspiration [Fatal]
  - Cholestasis [Fatal]
  - Hepatic function abnormal [Fatal]
  - Pyrexia [Recovered/Resolved]
  - Jaundice [Unknown]

NARRATIVE: CASE EVENT DATE: 2019
